FAERS Safety Report 4702157-1 (Version None)
Quarter: 2005Q2

REPORT INFORMATION
  Report Type: 
  Country: None (occurrence: None)
  Receive Date: 20050629
  Receipt Date: 20050617
  Transmission Date: 20051028
  Serious: Yes (Death, Other)
  Sender: FDA-Public Use
  Company Number: 200511584EU

PATIENT
  Age: 82 Year
  Sex: Male

DRUGS (14)
  1. RILUTEK [Suspect]
     Indication: AMYOTROPHIC LATERAL SCLEROSIS
     Route: 048
     Dates: start: 20050519, end: 20050519
  2. VENTOLINE EVOHALER [Concomitant]
     Indication: ASTHMA
     Route: 055
  3. CO-AMILOFRUSE [Concomitant]
     Indication: MYOCARDIAL ISCHAEMIA
     Dosage: DOSE: UNKNOWN
     Route: 048
     Dates: start: 19990101
  4. AMIODARONE [Concomitant]
     Indication: ATRIAL FIBRILLATION
     Route: 048
     Dates: start: 19990101
  5. ASPIRIN [Concomitant]
     Indication: MYOCARDIAL ISCHAEMIA
     Route: 048
     Dates: start: 19990101
  6. BETOPTIC [Concomitant]
     Indication: GLAUCOMA
     Dosage: DOSE UNIT: UNITS
     Route: 047
     Dates: start: 19930101
  7. MESALAMINE [Concomitant]
     Indication: COLITIS ULCERATIVE
     Dates: start: 19960101
  8. AZATHIOPRINE [Concomitant]
     Indication: COLITIS ULCERATIVE
     Dates: start: 19970101
  9. ALFUZOSIN [Concomitant]
     Indication: BENIGN PROSTATIC HYPERPLASIA
  10. TRAVATAN [Concomitant]
     Indication: GLAUCOMA
     Dosage: DOSE: UNKNOWN
     Route: 047
     Dates: start: 20050101
  11. AZOPT [Concomitant]
     Indication: GLAUCOMA
     Dosage: DOSE: UNKNOWN
     Route: 047
     Dates: start: 20030101
  12. FYBOGEL [Concomitant]
     Indication: CONSTIPATION
     Dosage: DOSE UNIT: UNITS
  13. LACTULOSE [Concomitant]
     Indication: CONSTIPATION
  14. SENNA [Concomitant]
     Indication: CONSTIPATION

REACTIONS (3)
  - CARDIAC FAILURE [None]
  - MYOCARDIAL ISCHAEMIA [None]
  - PANCREATITIS ACUTE [None]
